FAERS Safety Report 5021286-9 (Version None)
Quarter: 2006Q2

REPORT INFORMATION
  Report Type: 
  Country: None (occurrence: None)
  Receive Date: 20060608
  Receipt Date: 20060112
  Transmission Date: 20061013
  Serious: Yes (Death, Life-Threatening, Hospitalization)
  Sender: FDA-Public Use
  Company Number: BE-GLAXOSMITHKLINE-B0406465A

PATIENT
  Age: 61 Year
  Sex: Male
  Weight: 80 kg

DRUGS (15)
  1. ALKERAN [Suspect]
     Indication: MULTIPLE MYELOMA
     Dosage: 400MG PER DAY
     Route: 042
     Dates: start: 20060111, end: 20060111
  2. LITICAN [Concomitant]
     Indication: VOMITING
     Dosage: 1VIAL TWICE PER DAY
     Route: 042
     Dates: start: 20060111, end: 20060111
  3. TRANXENE [Concomitant]
     Indication: VOMITING
     Dosage: .5VIAL PER DAY
     Route: 042
     Dates: start: 20060111, end: 20060111
  4. GLUCOSALINE [Concomitant]
     Indication: DEHYDRATION
     Dosage: 3L PER DAY
     Route: 042
     Dates: start: 20060110
  5. ZOFRAN [Concomitant]
     Indication: VOMITING
     Dosage: 1VIAL THREE TIMES PER DAY
     Route: 042
     Dates: start: 20060111, end: 20060111
  6. FRAXIPARINE [Concomitant]
     Indication: PHLEBITIS
     Dosage: .44CC PER DAY
     Route: 058
     Dates: start: 20060110, end: 20060111
  7. POTASSIUM CHLORIDE [Concomitant]
     Dosage: 20MEQ PER DAY
     Route: 042
     Dates: start: 20060110, end: 20060111
  8. TARIVID [Concomitant]
     Indication: ILL-DEFINED DISORDER
     Dosage: 400MG TWICE PER DAY
     Route: 048
     Dates: start: 20060110, end: 20060111
  9. DIFLUCAN [Concomitant]
     Indication: ILL-DEFINED DISORDER
     Dosage: 200MG PER DAY
     Route: 048
     Dates: start: 20060110, end: 20060111
  10. ZOVIRAX [Concomitant]
     Indication: ANTIVIRAL PROPHYLAXIS
     Dosage: 400MG THREE TIMES PER DAY
     Route: 048
     Dates: start: 20060110, end: 20060111
  11. OMEPRAZOLE [Concomitant]
     Dosage: 20MG PER DAY
     Route: 048
  12. MOTILIUM [Concomitant]
     Dosage: 3U PER DAY
     Route: 065
  13. TEMESTA [Concomitant]
     Dosage: 2.5MG PER DAY
     Route: 065
  14. UNKNOWN [Concomitant]
     Dosage: 1L PER DAY
     Route: 042
     Dates: start: 20060110
  15. UNKNOWN [Concomitant]
     Dosage: .5TAB PER DAY
     Route: 048

REACTIONS (10)
  - ANAPHYLACTIC SHOCK [None]
  - CARDIAC ARREST [None]
  - CARDIO-RESPIRATORY ARREST [None]
  - COMA [None]
  - COUGH [None]
  - HYPERSENSITIVITY [None]
  - LOCKED-IN SYNDROME [None]
  - MALAISE [None]
  - RESPIRATORY ARREST [None]
  - SEPSIS [None]
